FAERS Safety Report 15375812 (Version 1)
Quarter: 2018Q3

REPORT INFORMATION
  Report Type: Report from Study
  Country: US (occurrence: US)
  Receive Date: 20180912
  Receipt Date: 20180912
  Transmission Date: 20181010
  Serious: Yes (Hospitalization, Other)
  Sender: FDA-Public Use
  Company Number: US-PFIZER INC-2018365334

PATIENT
  Age: 74 Year
  Sex: Male
  Weight: 84.44 kg

DRUGS (5)
  1. SILDENAFIL CITRATE. [Suspect]
     Active Substance: SILDENAFIL CITRATE
     Dosage: UNK
     Dates: end: 2018
  2. TYVASO [Suspect]
     Active Substance: TREPROSTINIL
     Indication: PULMONARY ARTERIAL HYPERTENSION
     Dosage: 18?54 MICROGRAMS (3?9 BREATHS), 4X/DAY
     Route: 055
     Dates: start: 20180813
  3. REMODULIN [Suspect]
     Active Substance: TREPROSTINIL
     Indication: PULMONARY ARTERIAL HYPERTENSION
     Dosage: 0.022 UG/KG/MIN
     Route: 058
     Dates: start: 20180112, end: 2018
  4. TYVASO [Suspect]
     Active Substance: TREPROSTINIL
     Dosage: 18 UG, UNK [18 MICROGRAMS (3 BREATHS)]
     Dates: start: 201808
  5. TYVASO [Suspect]
     Active Substance: TREPROSTINIL
     Dosage: 36 UG, UNK [36 MICROGRAMS (6 BREATHS)]
     Dates: start: 201808

REACTIONS (11)
  - Eye disorder [Unknown]
  - Thrombosis [Unknown]
  - Myalgia [Unknown]
  - Cough [Not Recovered/Not Resolved]
  - Plasma cell myeloma [Unknown]
  - Condition aggravated [Unknown]
  - Arthralgia [Unknown]
  - Headache [Unknown]
  - Peripheral swelling [Unknown]
  - Joint swelling [Unknown]
  - Pneumonia [Unknown]

NARRATIVE: CASE EVENT DATE: 2018
